FAERS Safety Report 9442616 (Version 1)
Quarter: 2013Q3

REPORT INFORMATION
  Report Type: Spontaneous
  Country: US (occurrence: None)
  Receive Date: 20130805
  Receipt Date: 20130805
  Transmission Date: 20140515
  Serious: No
  Sender: FDA-Public Use
  Company Number: None

PATIENT
  Age: 61 Year
  Sex: Female

DRUGS (1)
  1. HUMIRA [Suspect]
     Dates: start: 20130509, end: 20130724

REACTIONS (3)
  - Diarrhoea [None]
  - Dizziness [None]
  - Injection site reaction [None]
